FAERS Safety Report 7183780-4 (Version None)
Quarter: 2010Q4

REPORT INFORMATION
  Report Type: 
  Country: None (occurrence: None)
  Receive Date: 20101220
  Receipt Date: 20101220
  Transmission Date: 20110411
  Serious: Yes (Hospitalization)
  Sender: FDA-Public Use
  Company Number: None

PATIENT
  Sex: Female
  Weight: 79 kg

DRUGS (6)
  1. CYCLOPHOSPHAMIDE [Suspect]
     Dosage: 1800 MG
  2. CYTARABINE [Suspect]
     Dosage: 1080 MG
  3. DOXORUBICIN HYDROCHLORIDE [Suspect]
     Dosage: 135 MG
  4. METHOTREXATE [Suspect]
     Dosage: 45 MG
  5. PEG-L-ASPARAGINASE (K-H) [Suspect]
     Dosage: 9000 MG
  6. VINCRISTINE SULFATE [Suspect]
     Dosage: 10 MG

REACTIONS (4)
  - ABDOMINAL PAIN [None]
  - ASTHENIA [None]
  - DIARRHOEA [None]
  - PYREXIA [None]
